FAERS Safety Report 5075255-3 (Version None)
Quarter: 2006Q3

REPORT INFORMATION
  Report Type: 
  Country: None (occurrence: None)
  Receive Date: 20060809
  Receipt Date: 20050712
  Transmission Date: 20061208
  Serious: Yes (Hospitalization)
  Sender: FDA-Public Use
  Company Number: CA-BRISTOL-MYERS SQUIBB COMPANY-13035696

PATIENT
  Age: 78 Year
  Sex: Male

DRUGS (6)
  1. CARBOPLATIN [Suspect]
     Indication: NON-SMALL CELL LUNG CANCER
     Route: 042
     Dates: start: 20050708
  2. GEMCITABINE [Suspect]
     Indication: NON-SMALL CELL LUNG CANCER
     Route: 042
     Dates: start: 20050708
  3. ONDANSETRON HCL [Suspect]
     Dates: start: 20050708, end: 20050710
  4. PROCHLORPERAZINE TAB [Concomitant]
     Dates: start: 20050708
  5. LACTULOSE [Concomitant]
     Dates: start: 20050708
  6. SOFLAX [Concomitant]
     Dates: start: 20050627

REACTIONS (2)
  - ACCIDENTAL OVERDOSE [None]
  - MALAISE [None]
